FAERS Safety Report 12532426 (Version 4)
Quarter: 2017Q1

REPORT INFORMATION
  Report Type: Report from Study
  Country: US (occurrence: US)
  Receive Date: 20160706
  Receipt Date: 20170224
  Transmission Date: 20170428
  Serious: Yes (Hospitalization)
  Sender: FDA-Public Use
  Company Number: US-ACTELION-A-US2015-115596

PATIENT
  Age: 4 Year
  Sex: Female
  Weight: 19.96 kg

DRUGS (4)
  1. TRACLEER [Suspect]
     Active Substance: BOSENTAN
     Indication: PULMONARY ARTERIAL HYPERTENSION
     Dosage: 62.5 MG, BID
     Route: 048
     Dates: start: 20141230
  2. TRACLEER [Suspect]
     Active Substance: BOSENTAN
     Dosage: 62.5 MG, BID
     Route: 048
  3. SILDENAFIL. [Concomitant]
     Active Substance: SILDENAFIL
     Dosage: 20 MG, TID
     Dates: start: 20141223
  4. REMODULIN [Suspect]
     Active Substance: TREPROSTINIL
     Indication: PRODUCT USED FOR UNKNOWN INDICATION
     Dosage: 117 NG/KG, PER MIN
     Route: 042
     Dates: start: 20150309

REACTIONS (13)
  - Catheter site haemorrhage [Unknown]
  - Infusion site pain [Unknown]
  - Catheter site pain [Unknown]
  - Application site rash [Unknown]
  - Catheter site erythema [Unknown]
  - Pyrexia [Unknown]
  - Enterobacter bacteraemia [Unknown]
  - Diarrhoea [Unknown]
  - Abdominal pain [Recovered/Resolved]
  - Device breakage [Recovered/Resolved]
  - Immunodeficiency [Unknown]
  - Gastrointestinal disorder [Unknown]
  - Device related infection [Recovered/Resolved]

NARRATIVE: CASE EVENT DATE: 20160516
